FAERS Safety Report 5630878-5 (Version None)
Quarter: 2008Q1

REPORT INFORMATION
  Report Type: 
  Country: None (occurrence: None)
  Receive Date: 20080219
  Receipt Date: 20080207
  Transmission Date: 20080703
  Serious: Yes (Hospitalization, Other)
  Sender: FDA-Public Use
  Company Number: DE-ROCHE-546552

PATIENT
  Age: 55 Year
  Sex: Male

DRUGS (4)
  1. INTERFERON ALFA [Suspect]
     Indication: HEPATITIS C
     Route: 065
  2. RIBAVIRIN [Suspect]
     Indication: HEPATITIS C
     Dosage: FREQUENCY REPORTED AS PER DAY
     Route: 065
  3. TRIMIPRAMINE MALEATE [Concomitant]
     Dosage: FREQUENCY REPORTED AS PER DAY
  4. ZOLPIDEM [Concomitant]
     Indication: DRUG USE FOR UNKNOWN INDICATION

REACTIONS (10)
  - ABDOMINAL PAIN UPPER [None]
  - ANXIETY [None]
  - DEPRESSION [None]
  - FATIGUE [None]
  - FEELING GUILTY [None]
  - INFLUENZA LIKE ILLNESS [None]
  - INSOMNIA [None]
  - SUICIDAL IDEATION [None]
  - SUICIDE ATTEMPT [None]
  - TENSION [None]
